FAERS Safety Report 21133857 (Version 1)
Quarter: 2022Q3

REPORT INFORMATION
  Report Type: Spontaneous
  Country: RU (occurrence: RU)
  Receive Date: 20220726
  Receipt Date: 20220726
  Transmission Date: 20221026
  Serious: Yes (Other)
  Sender: FDA-Public Use
  Company Number: RU-TAKEDA-2022TUS049458

PATIENT
  Age: 5 Year
  Sex: Male

DRUGS (6)
  1. ELAPRASE [Suspect]
     Active Substance: IDURSULFASE
     Indication: Mucopolysaccharidosis II
     Dosage: 0.5 MILLIGRAM/KILOGRAM, 1/WEEK
     Route: 065
  2. CHLOROPYRAMINE [Concomitant]
     Active Substance: CHLOROPYRAMINE
  3. PREDNISOLONE [Concomitant]
     Active Substance: PREDNISOLONE
  4. METHYLPREDNISOLONE [Concomitant]
     Active Substance: METHYLPREDNISOLONE
     Dosage: 1 MILLIGRAM/KILOGRAM, QD
  5. CYCLOSPORINE [Concomitant]
     Active Substance: CYCLOSPORINE
  6. OMALIZUMAB [Concomitant]
     Active Substance: OMALIZUMAB

REACTIONS (2)
  - Angioedema [Recovered/Resolved]
  - Urticaria [Recovered/Resolved]
